FAERS Safety Report 5277581-1 (Version None)
Quarter: 2007Q1

REPORT INFORMATION
  Report Type: 
  Country: None (occurrence: None)
  Receive Date: 20070327
  Receipt Date: 20070322
  Transmission Date: 20070707
  Serious: Yes (Hospitalization)
  Sender: FDA-Public Use
  Company Number: BR-SHR-BR-2007-001217

PATIENT
  Age: 42 Year
  Sex: Female
  Weight: 64.2 kg

DRUGS (3)
  1. YASMIN [Suspect]
     Indication: ORAL CONTRACEPTION
     Dosage: 1 TAB(S), UNK
     Route: 048
     Dates: start: 20060801
  2. YASMIN [Suspect]
     Dosage: 1 TAB(S), UNK
     Route: 048
  3. VITAMIN E [Concomitant]
     Dosage: UNK, UNK
     Route: 048
     Dates: start: 20061001

REACTIONS (1)
  - DYSPNOEA [None]
